FAERS Safety Report 17913018 (Version 3)
Quarter: 2020Q3

REPORT INFORMATION
  Report Type: Report from Study
  Country: IL (occurrence: IL)
  Receive Date: 20200618
  Receipt Date: 20200710
  Transmission Date: 20201103
  Serious: Yes (Hospitalization, Other)
  Sender: FDA-Public Use
  Company Number: NVSC2020IL167390

PATIENT
  Age: 26 Year
  Sex: Female
  Weight: 60 kg

DRUGS (7)
  1. FOLIC ACID. [Concomitant]
     Active Substance: FOLIC ACID
     Indication: PRODUCT USED FOR UNKNOWN INDICATION
     Dosage: UNK
     Route: 065
  2. ASPIRIN. [Concomitant]
     Active Substance: ASPIRIN
     Indication: PRODUCT USED FOR UNKNOWN INDICATION
     Dosage: UNK
     Route: 065
  3. MOXAFEN [Concomitant]
     Indication: PRODUCT USED FOR UNKNOWN INDICATION
     Dosage: UNK
     Route: 065
  4. VITAMIN D [Concomitant]
     Active Substance: VITAMIN D NOS
     Indication: PRODUCT USED FOR UNKNOWN INDICATION
     Dosage: UNK
     Route: 065
  5. CRIZANLIZUMAB [Suspect]
     Active Substance: CRIZANLIZUMAB
     Indication: SICKLE CELL DISEASE
     Dosage: 300 MG
     Route: 041
     Dates: start: 20200520
  6. CRIZANLIZUMAB [Suspect]
     Active Substance: CRIZANLIZUMAB
     Dosage: UNK
     Route: 065
     Dates: start: 20200603
  7. HYDREA [Concomitant]
     Active Substance: HYDROXYUREA
     Indication: PRODUCT USED FOR UNKNOWN INDICATION
     Dosage: UNK
     Route: 065

REACTIONS (4)
  - Arthralgia [Recovered/Resolved]
  - Arthralgia [Unknown]
  - Blood lactate dehydrogenase increased [Unknown]
  - Haemoglobin decreased [Unknown]

NARRATIVE: CASE EVENT DATE: 20200607
